FAERS Safety Report 21238741 (Version 1)
Quarter: 2022Q3

REPORT INFORMATION
  Report Type: Spontaneous
  Country: JP (occurrence: JP)
  Receive Date: 20220822
  Receipt Date: 20220822
  Transmission Date: 20221026
  Serious: Yes (Hospitalization, Other)
  Sender: FDA-Public Use
  Company Number: JP-MACLEODS PHARMACEUTICALS US LTD-MAC2022036889

PATIENT

DRUGS (5)
  1. NIFEDIPINE [Interacting]
     Active Substance: NIFEDIPINE
     Indication: Prinzmetal angina
     Dosage: 80 MILLIGRAM, QD
     Route: 065
  2. NIFEDIPINE [Interacting]
     Active Substance: NIFEDIPINE
     Dosage: 40 MILLIGRAM, QD
     Route: 065
  3. AMLODIPINE [Suspect]
     Active Substance: AMLODIPINE BESYLATE
     Indication: Prinzmetal angina
     Dosage: 5 MILLIGRAM, QD
     Route: 065
  4. DILTIAZEM [Interacting]
     Active Substance: DILTIAZEM
     Indication: Prinzmetal angina
     Dosage: 200 MILLIGRAM, QD
     Route: 065
  5. NITROGLYCERIN [Concomitant]
     Active Substance: NITROGLYCERIN
     Indication: Prinzmetal angina
     Dosage: 27 MILLIGRAM, QD (PER 24 HOURS)
     Route: 065

REACTIONS (2)
  - Oedema peripheral [Recovered/Resolved]
  - Drug interaction [Unknown]
